FAERS Safety Report 11572640 (Version 2)
Quarter: 2015Q4

REPORT INFORMATION
  Report Type: Spontaneous
  Country: DE (occurrence: DE)
  Receive Date: 20150929
  Receipt Date: 20151022
  Transmission Date: 20160304
  Serious: Yes (Other)
  Sender: FDA-Public Use
  Company Number: DE-SHIRE-DE201512066

PATIENT
  Age: 17 Year
  Sex: Male
  Weight: 70 kg

DRUGS (1)
  1. ELVANSE [Suspect]
     Active Substance: LISDEXAMFETAMINE DIMESYLATE
     Indication: ATTENTION DEFICIT/HYPERACTIVITY DISORDER
     Dosage: 50 MG, 1X/DAY:QD (AM)
     Route: 048
     Dates: start: 2014, end: 20150925

REACTIONS (2)
  - Urinary retention [Unknown]
  - Prostatitis [Not Recovered/Not Resolved]

NARRATIVE: CASE EVENT DATE: 20150910
